FAERS Safety Report 24291398 (Version 1)
Quarter: 2024Q3

REPORT INFORMATION
  Report Type: Spontaneous
  Country: US (occurrence: None)
  Receive Date: 20240906
  Receipt Date: 20240906
  Transmission Date: 20241017
  Serious: No
  Sender: DOMPE FARMACEUTICI
  Company Number: US-FARMAPROD-202308-2498

PATIENT
  Age: 25 Year
  Sex: Female

DRUGS (18)
  1. OXERVATE [Suspect]
     Active Substance: CENEGERMIN-BKBJ
     Indication: Neurotrophic keratopathy
     Route: 047
     Dates: start: 20230710, end: 20230904
  2. DIFLUPREDNATE [Concomitant]
     Active Substance: DIFLUPREDNATE
  3. MAXITROL [Concomitant]
     Active Substance: DEXAMETHASONE\NEOMYCIN SULFATE\POLYMYXIN B SULFATE
     Dosage: 3.5-10K-.1 (GM)
  4. PROBIOTIC 100B [Concomitant]
  5. ZYRTEC [Concomitant]
     Active Substance: CETIRIZINE HYDROCHLORIDE
  6. NIACIN [Concomitant]
     Active Substance: NIACIN
  7. CLONAZEPAM [Concomitant]
     Active Substance: CLONAZEPAM
  8. AZELASTINE HYDROCHLORIDE [Concomitant]
     Active Substance: AZELASTINE HYDROCHLORIDE
     Dosage: SPRAY/PUMP.
  9. OFLOXACIN [Concomitant]
     Active Substance: OFLOXACIN
  10. LEVOTHYROXINE SODIUM [Concomitant]
     Active Substance: LEVOTHYROXINE SODIUM
  11. NAPROXEN [Concomitant]
     Active Substance: NAPROXEN
  12. KEPPRA [Concomitant]
     Active Substance: LEVETIRACETAM
  13. MIRALAX [Concomitant]
     Active Substance: POLYETHYLENE GLYCOL 3350
  14. CALCIUM [Concomitant]
     Active Substance: CALCIUM
     Dosage: 500 (1250)
  15. FISH OIL [Concomitant]
     Active Substance: FISH OIL
  16. REFRESH TEARS [Concomitant]
     Active Substance: CARBOXYMETHYLCELLULOSE SODIUM
  17. VITAMIN C [Concomitant]
     Active Substance: ASCORBIC ACID
  18. DUREZOL [Concomitant]
     Active Substance: DIFLUPREDNATE
     Dosage: 4 TIMES DAILY

REACTIONS (1)
  - Corneal transplant [Not Recovered/Not Resolved]

NARRATIVE: CASE EVENT DATE: 20230801
